FAERS Safety Report 24539947 (Version 2)
Quarter: 2025Q3

REPORT INFORMATION
  Report Type: Report from Study
  Country: ZA (occurrence: ZA)
  Receive Date: 20241023
  Receipt Date: 20250802
  Transmission Date: 20251021
  Serious: Yes (Other)
  Sender: ALEXION PHARMACEUTICALS
  Company Number: ZA-AstraZeneca-CH-00728556A

PATIENT
  Age: 28 Year
  Sex: Male

DRUGS (7)
  1. BUDESONIDE\FORMOTEROL FUMARATE DIHYDRATE [Suspect]
     Active Substance: BUDESONIDE\FORMOTEROL FUMARATE DIHYDRATE
  2. CLOBAZAM [Concomitant]
     Active Substance: CLOBAZAM
     Indication: Anxiety
  3. LAMOTRIGINE [Concomitant]
     Active Substance: LAMOTRIGINE
     Indication: Epilepsy
  4. LEVETIRACETAM [Concomitant]
     Active Substance: LEVETIRACETAM
     Indication: Epilepsy
  5. VALPROIC ACID [Concomitant]
     Active Substance: VALPROIC ACID
     Indication: Migraine
  6. FYCOMPA [Concomitant]
     Active Substance: PERAMPANEL
  7. CLARITHROMYCIN [Concomitant]
     Active Substance: CLARITHROMYCIN

REACTIONS (1)
  - Epilepsy [Unknown]
